FAERS Safety Report 4530676-X (Version None)
Quarter: 2004Q4

REPORT INFORMATION
  Report Type: 
  Country: None (occurrence: None)
  Receive Date: 20041217
  Receipt Date: 20041004
  Transmission Date: 20050328
  Serious: Yes (Death, Hospitalization)
  Sender: FDA-Public Use
  Company Number: 200420673BWH

PATIENT
  Age: 71 Year
  Sex: Male

DRUGS (10)
  1. ALBUTEROL [Suspect]
     Indication: PNEUMONIA
     Dosage: 2.5MG SEE DOSAGE TEXT
     Route: 055
     Dates: start: 20040401, end: 20040401
  2. AVELOX [Suspect]
     Indication: PNEUMONIA
     Dosage: 400MG UNKNOWN
     Route: 042
     Dates: start: 20040401, end: 20040401
  3. ATROVENT [Suspect]
     Indication: PNEUMONIA
     Route: 055
     Dates: start: 20040401, end: 20040401
  4. BCG VACCINE [Suspect]
  5. ROCEPHIN [Suspect]
     Dosage: 1G TWICE PER DAY
     Route: 042
     Dates: start: 20040401, end: 20040401
  6. TYLENOL (CAPLET) [Suspect]
     Dosage: 650MG AS REQUIRED
     Route: 048
     Dates: start: 20040401, end: 20040401
  7. COUMADIN [Concomitant]
     Indication: ATRIAL FIBRILLATION
     Dosage: 6MG PER DAY
     Route: 065
     Dates: start: 20040301
  8. LISINOPRIL [Concomitant]
     Indication: HYPERTENSION
     Dosage: 20MG PER DAY
     Route: 065
  9. HYDROCHLOROTHIAZIDE [Concomitant]
     Indication: HYPERTENSION
     Dosage: 25MG PER DAY
     Route: 065
  10. ATENOLOL [Concomitant]
     Indication: ATRIAL FIBRILLATION
     Dosage: 50MG PER DAY
     Route: 065

REACTIONS (15)
  - ACUTE PULMONARY OEDEMA [None]
  - APNOEA [None]
  - ATRIAL FIBRILLATION [None]
  - CARDIAC ARREST [None]
  - CARDIAC FAILURE CONGESTIVE [None]
  - CONFUSIONAL STATE [None]
  - CYANOSIS [None]
  - DEPRESSED LEVEL OF CONSCIOUSNESS [None]
  - ELECTROMECHANICAL DISSOCIATION [None]
  - HAEMOPTYSIS [None]
  - HYPERHIDROSIS [None]
  - PULMONARY EMBOLISM [None]
  - PULSE ABSENT [None]
  - RALES [None]
  - RENAL FAILURE [None]
